FAERS Safety Report 9419989 (Version 1)
Quarter: 2013Q3

REPORT INFORMATION
  Report Type: Spontaneous
  Country: FR (occurrence: FR)
  Receive Date: 20130725
  Receipt Date: 20130725
  Transmission Date: 20140515
  Serious: Yes (Death, Hospitalization, Other)
  Sender: FDA-Public Use
  Company Number: FR-TEVA-421232ISR

PATIENT
  Age: 93 Year
  Sex: Female

DRUGS (10)
  1. FUROSEMIDE TEVA 40 MG [Suspect]
     Indication: CARDIAC FAILURE
     Route: 048
     Dates: end: 20130525
  2. ALTEIS 10 MG [Concomitant]
     Route: 048
  3. MONICOR LP [Concomitant]
  4. PLAVIX 75 MG [Concomitant]
  5. LEVOTHYROX 25 MICROG [Concomitant]
  6. CORDARONE [Concomitant]
  7. DOMPERIDONE [Concomitant]
  8. FOSAMAX [Concomitant]
  9. OMNIPAQUE [Concomitant]
  10. NITRIDERM [Concomitant]

REACTIONS (5)
  - Cardiac failure [Fatal]
  - Acute pulmonary oedema [Fatal]
  - Bronchopneumonia [Unknown]
  - Condition aggravated [Unknown]
  - Dyspnoea [Unknown]
